FAERS Safety Report 10784595 (Version 3)
Quarter: 2015Q1

REPORT INFORMATION
  Report Type: Spontaneous
  Country: US (occurrence: US)
  Receive Date: 20150211
  Receipt Date: 20150317
  Transmission Date: 20150721
  Serious: No
  Sender: FDA-Public Use
  Company Number: US-BAYER-2015-018761

PATIENT
  Age: 29 Year
  Sex: Female

DRUGS (1)
  1. MIRENA [Suspect]
     Active Substance: LEVONORGESTREL
     Indication: CONTRACEPTION
     Dosage: 20 MCG/24HR, CONT
     Route: 015
     Dates: start: 201312, end: 20141217

REACTIONS (7)
  - Acne [None]
  - Weight increased [None]
  - Abnormal behaviour [None]
  - Adverse drug reaction [None]
  - Alopecia [None]
  - Crying [None]
  - Rash [None]

NARRATIVE: CASE EVENT DATE: 2014
